FAERS Safety Report 23470227 (Version 1)
Quarter: 2024Q1

REPORT INFORMATION
  Report Type: Spontaneous
  Country: NP (occurrence: NP)
  Receive Date: 20240202
  Receipt Date: 20240202
  Transmission Date: 20240410
  Serious: Yes (Life-Threatening, Hospitalization, Other)
  Sender: FDA-Public Use
  Company Number: NP-MLMSERVICE-20240118-4778520-1

PATIENT
  Age: 66 Year
  Sex: Female

DRUGS (4)
  1. AMLODIPINE [Suspect]
     Active Substance: AMLODIPINE BESYLATE
     Indication: Essential hypertension
     Dosage: 5 MG PO OD
     Route: 048
  2. LOSARTAN [Suspect]
     Active Substance: LOSARTAN
     Indication: Essential hypertension
     Dosage: 50 MG PO OD
     Route: 048
  3. LEVOTHYROXINE [Concomitant]
     Active Substance: LEVOTHYROXINE\LEVOTHYROXINE SODIUM
     Indication: Primary hypothyroidism
     Dosage: UNKNOWN
     Route: 048
  4. METFORMIN [Concomitant]
     Active Substance: METFORMIN HYDROCHLORIDE
     Indication: Type 2 diabetes mellitus
     Dosage: UNKNOWN
     Route: 048

REACTIONS (5)
  - Posterior reversible encephalopathy syndrome [Recovered/Resolved]
  - Left ventricular dysfunction [Recovered/Resolved]
  - Treatment noncompliance [Recovered/Resolved]
  - Retinopathy hypertensive [Unknown]
  - Medication error [Unknown]
